FAERS Safety Report 20674380 (Version 1)
Quarter: 2022Q2

REPORT INFORMATION
  Report Type: Spontaneous
  Country: US (occurrence: US)
  Receive Date: 20220405
  Receipt Date: 20220405
  Transmission Date: 20220721
  Serious: No
  Sender: FDA-Public Use
  Company Number: US-PFIZER INC-2021654293

PATIENT
  Age: 49 Year
  Sex: Female
  Weight: 117.93 kg

DRUGS (1)
  1. CHANTIX [Suspect]
     Active Substance: VARENICLINE TARTRATE
     Indication: Smoking cessation therapy
     Dosage: STARTER PACK. STARTED ONE TABLET DAILY AND ENDED UP TAKING TWICE DAILY BY MOUTH
     Route: 048
     Dates: start: 202105

REACTIONS (2)
  - Emotional disorder [Recovering/Resolving]
  - Poor quality sleep [Not Recovered/Not Resolved]
